FAERS Safety Report 25566617 (Version 1)
Quarter: 2025Q3

REPORT INFORMATION
  Report Type: Spontaneous
  Country: US (occurrence: None)
  Receive Date: 20250715
  Receipt Date: 20250715
  Transmission Date: 20251021
  Serious: No
  Sender: FDA-CTU
  Company Number: None

PATIENT
  Age: 69 Year
  Sex: Female
  Weight: 59.85 kg

DRUGS (6)
  1. PAXLOVID [Suspect]
     Active Substance: NIRMATRELVIR\RITONAVIR
     Indication: COVID-19
     Dosage: OTHER QUANTITY : 30 TABLET(S);?FREQUENCY : TWICE A DAY;?
     Route: 048
     Dates: start: 20250709, end: 20250713
  2. omeprazole 20 mg 2x/day [Concomitant]
  3. atorvastatin 20 mg 1x/day [Concomitant]
  4. Zepbound 10mg 1x/week [Concomitant]
  5. multivitamin 1x/day [Concomitant]
  6. vitamin D 50mcg/2000IU [Concomitant]

REACTIONS (6)
  - Dysgeusia [None]
  - Product taste abnormal [None]
  - Decreased appetite [None]
  - Middle insomnia [None]
  - Insomnia [None]
  - Weight decreased [None]

NARRATIVE: CASE EVENT DATE: 20250709
